FAERS Safety Report 24754726 (Version 2)
Quarter: 2025Q1

REPORT INFORMATION
  Report Type: Spontaneous
  Country: JP (occurrence: JP)
  Receive Date: 20241219
  Receipt Date: 20250304
  Transmission Date: 20250409
  Serious: No
  Sender: ALEXION PHARMACEUTICALS
  Company Number: JP-ASTRAZENECA-240140702_013120_P_1

PATIENT
  Age: 54 Year
  Weight: 51 kg

DRUGS (4)
  1. DURVALUMAB [Suspect]
     Active Substance: DURVALUMAB
     Indication: Non-small cell lung cancer
     Dosage: 1500 MILLIGRAM, Q2W
  2. LANSOPRAZOLE [Concomitant]
     Active Substance: LANSOPRAZOLE
     Indication: Gastrooesophageal reflux disease
  3. ALLOID G [Concomitant]
     Active Substance: SODIUM ALGINATE
     Indication: Radiation oesophagitis
  4. CALONAL [Concomitant]
     Active Substance: ACETAMINOPHEN
     Indication: Radiation oesophagitis

REACTIONS (2)
  - Lacrimation increased [Recovered/Resolved]
  - Periorbital oedema [Recovered/Resolved]
